FAERS Safety Report 9464379 (Version 1)
Quarter: 2013Q3

REPORT INFORMATION
  Report Type: Spontaneous
  Country: BR (occurrence: BR)
  Receive Date: 20130819
  Receipt Date: 20130819
  Transmission Date: 20140515
  Serious: Yes (Other)
  Sender: FDA-Public Use
  Company Number: BR-PFIZER INC-2013236639

PATIENT
  Age: 75 Year
  Sex: Male

DRUGS (1)
  1. FRONTAL [Suspect]
     Indication: TENSION
     Dosage: UNSPECIFIED DOSE, 2X/DAY
     Route: 048
     Dates: start: 200308

REACTIONS (1)
  - Vein disorder [Unknown]
